FAERS Safety Report 4502452-5 (Version None)
Quarter: 2004Q4

REPORT INFORMATION
  Report Type: 
  Country: None (occurrence: None)
  Receive Date: 20041112
  Receipt Date: 20041105
  Transmission Date: 20050328
  Serious: Yes (Other)
  Sender: FDA-Public Use
  Company Number: NLWYE064424SEP04

PATIENT
  Age: 41 Year
  Sex: Female

DRUGS (5)
  1. EFFEXOR XR [Suspect]
     Indication: FAMILY STRESS
     Dosage: SEE IMAGE
     Route: 048
     Dates: start: 20031110, end: 20040101
  2. EFFEXOR XR [Suspect]
     Indication: POSTPARTUM DEPRESSION
     Dosage: SEE IMAGE
     Route: 048
     Dates: start: 20031110, end: 20040101
  3. EFFEXOR XR [Suspect]
     Indication: FAMILY STRESS
     Dosage: SEE IMAGE
     Route: 048
     Dates: start: 20040101
  4. EFFEXOR XR [Suspect]
     Indication: POSTPARTUM DEPRESSION
     Dosage: SEE IMAGE
     Route: 048
     Dates: start: 20040101
  5. VITAMIN B (VITAMIN B) [Concomitant]

REACTIONS (4)
  - DYSARTHRIA [None]
  - HYPERACUSIS [None]
  - INTERVERTEBRAL DISC PROTRUSION [None]
  - MYOCLONUS [None]
